FAERS Safety Report 6634179-8 (Version None)
Quarter: 2010Q1

REPORT INFORMATION
  Report Type: 
  Country: None (occurrence: None)
  Receive Date: 20100315
  Receipt Date: 20100308
  Transmission Date: 20100710
  Serious: Yes (Hospitalization)
  Sender: FDA-Public Use
  Company Number: FR-JNJFOC-20100302708

PATIENT
  Sex: Female

DRUGS (4)
  1. PEPCID [Suspect]
     Route: 048
  2. PEPCID [Suspect]
     Indication: DRUG USE FOR UNKNOWN INDICATION
     Route: 048
  3. NEXIUM [Suspect]
     Indication: ABDOMINAL PAIN
     Route: 048
  4. SPASFON LYOC [Suspect]
     Indication: ABDOMINAL PAIN
     Route: 048

REACTIONS (4)
  - ABDOMINAL PAIN [None]
  - DYSPHAGIA [None]
  - LIP OEDEMA [None]
  - TONGUE OEDEMA [None]
